FAERS Safety Report 7282486-0 (Version None)
Quarter: 2011Q1

REPORT INFORMATION
  Report Type: 
  Country: None (occurrence: None)
  Receive Date: 20110209
  Receipt Date: 20110131
  Transmission Date: 20110831
  Serious: Yes (Other)
  Sender: FDA-Public Use
  Company Number: VE-GENZYME-CERZ-1001623

PATIENT

DRUGS (1)
  1. CEREZYME [Suspect]
     Indication: GAUCHER'S DISEASE
     Dosage: 400 U, Q2W
     Route: 042
     Dates: start: 20071029

REACTIONS (1)
  - ENCHONDROMA [None]
